FAERS Safety Report 6453059-4 (Version None)
Quarter: 2009Q4

REPORT INFORMATION
  Report Type: 
  Country: None (occurrence: None)
  Receive Date: 20091124
  Receipt Date: 20090928
  Transmission Date: 20100525
  Serious: No
  Sender: FDA-Public Use
  Company Number: US-ABBOTT-09P-163-0600052-00

PATIENT
  Sex: Female

DRUGS (10)
  1. TRICOR [Suspect]
     Indication: BLOOD CHOLESTEROL INCREASED
     Dates: start: 20090301, end: 20090901
  2. CRESTOR [Suspect]
     Indication: BLOOD CHOLESTEROL INCREASED
     Dates: start: 20090301, end: 20090901
  3. PLAVIX [Concomitant]
     Indication: CORONARY ARTERY BYPASS
     Dates: start: 20080701
  4. ASPIRIN [Concomitant]
     Indication: CORONARY ARTERY BYPASS
     Dates: start: 20080701
  5. LEVOTHYROXINE SODIUM [Concomitant]
     Indication: HYPOTHYROIDISM
  6. ZEMPLAR [Concomitant]
     Indication: VITAMIN SUPPLEMENTATION
     Dates: start: 20090301
  7. VITAMIN D [Concomitant]
     Indication: VITAMIN SUPPLEMENTATION
     Dosage: DAILY
     Dates: start: 20090301, end: 20090601
  8. INSULIN [Concomitant]
     Indication: TYPE 1 DIABETES MELLITUS
     Dosage: 70/30-15UNITS 3 IN 1 DAY
     Route: 058
  9. LANTUS [Concomitant]
     Indication: TYPE 1 DIABETES MELLITUS
  10. IRON [Concomitant]
     Indication: BLOOD IRON DECREASED
     Dates: start: 20050101

REACTIONS (2)
  - BLOOD CHOLESTEROL ABNORMAL [None]
  - CARBON DIOXIDE DECREASED [None]
